FAERS Safety Report 16943893 (Version 1)
Quarter: 2019Q4

REPORT INFORMATION
  Report Type: Spontaneous
  Country: US (occurrence: US)
  Receive Date: 20191022
  Receipt Date: 20191022
  Transmission Date: 20200122
  Serious: No
  Sender: FDA-Public Use
  Company Number: US-AJANTA PHARMA USA INC.-2075906

PATIENT
  Sex: Male

DRUGS (1)
  1. TADALAFIL TABLETS (ANDA 209654) [Suspect]
     Active Substance: TADALAFIL
     Indication: ERECTILE DYSFUNCTION
     Route: 048

REACTIONS (1)
  - Drug ineffective [Recovered/Resolved]
